FAERS Safety Report 9527670 (Version 1)
Quarter: 2013Q3

REPORT INFORMATION
  Report Type: Spontaneous
  Country: US (occurrence: None)
  Receive Date: 20130913
  Receipt Date: 20130913
  Transmission Date: 20140515
  Serious: Yes (Life-Threatening, Hospitalization)
  Sender: FDA-Public Use
  Company Number: None

PATIENT
  Sex: Male

DRUGS (1)
  1. ENBREL AMGEN AND PFIZER [Suspect]
     Indication: ANKYLOSING SPONDYLITIS
     Dosage: GIVEN INTO/UNDER THE SKIN
     Dates: start: 201305, end: 201307

REACTIONS (4)
  - Acute myeloid leukaemia [None]
  - Nipple pain [None]
  - Skin disorder [None]
  - Testicular mass [None]
